FAERS Safety Report 5125057-4 (Version None)
Quarter: 2006Q4

REPORT INFORMATION
  Report Type: 
  Country: None (occurrence: None)
  Receive Date: 20061010
  Receipt Date: 20061010
  Transmission Date: 20070319
  Serious: Yes (Hospitalization)
  Sender: FDA-Public Use
  Company Number: None

PATIENT
  Age: 68 Year
  Sex: Male
  Weight: 100 kg

DRUGS (2)
  1. ALIMTA [Suspect]
     Indication: NON-SMALL CELL LUNG CANCER
     Dosage: 500 MG /M2, IV , Q21 D
     Route: 042
     Dates: start: 20060915
  2. ALIMTA [Suspect]
     Indication: NON-SMALL CELL LUNG CANCER
     Dosage: 500 MG /M2, IV , Q21 D
     Route: 042
     Dates: start: 20061006

REACTIONS (2)
  - ABSCESS [None]
  - CULTURE WOUND POSITIVE [None]
